FAERS Safety Report 6682745-6 (Version None)
Quarter: 2010Q2

REPORT INFORMATION
  Report Type: 
  Country: None (occurrence: None)
  Receive Date: 20100415
  Receipt Date: 20100409
  Transmission Date: 20101027
  Serious: Yes (Life-Threatening, Hospitalization, Other)
  Sender: FDA-Public Use
  Company Number: US-ELI_LILLY_AND_COMPANY-US201004002828

PATIENT
  Sex: Female

DRUGS (4)
  1. HUMALOG MIX 50/50 [Suspect]
     Indication: DIABETES MELLITUS
     Dosage: 20 U, EACH MORNING
     Dates: start: 20020101
  2. HUMALOG MIX 50/50 [Suspect]
     Dosage: 20 U, OTHER
     Dates: start: 20020101
  3. HUMALOG MIX 50/50 [Suspect]
     Dosage: 20 U, EACH EVENING
     Dates: start: 20020101
  4. LANTUS [Concomitant]
     Dosage: 60 U, 2/D

REACTIONS (5)
  - CEREBROVASCULAR ACCIDENT [None]
  - LUNG DISORDER [None]
  - MYOCARDIAL INFARCTION [None]
  - PNEUMOTHORAX [None]
  - VOCAL CORD PARALYSIS [None]
